FAERS Safety Report 5400317-8 (Version None)
Quarter: 2007Q3

REPORT INFORMATION
  Report Type: 
  Country: None (occurrence: None)
  Receive Date: 20070730
  Receipt Date: 20070717
  Transmission Date: 20080115
  Serious: Yes (Hospitalization)
  Sender: FDA-Public Use
  Company Number: US-AMGEN-KDL231950

PATIENT
  Sex: Male
  Weight: 115.5 kg

DRUGS (15)
  1. PROCRIT [Suspect]
     Indication: ANAEMIA OF MALIGNANT DISEASE
     Route: 058
     Dates: start: 20070515
  2. THALIDOMIDE [Suspect]
  3. DEXAMETHASONE [Suspect]
     Route: 048
  4. ASPIRIN [Concomitant]
  5. FENTANYL [Concomitant]
  6. OXYCODONE HCL [Concomitant]
  7. ACETAMINOPHEN [Concomitant]
     Route: 048
  8. HALOPERIDOL [Concomitant]
  9. ACYCLOVIR [Concomitant]
     Route: 048
  10. VITAMIN CAP [Concomitant]
  11. DOCUSATE SODIUM [Concomitant]
     Route: 048
  12. PRAZOSIN HCL [Concomitant]
     Route: 048
  13. ESOMEPRAZOLE MAGNESIUM [Concomitant]
     Route: 048
  14. MAGNESIUM HYDROXIDE TAB [Concomitant]
  15. DIMETICONE, ACTIVATED [Concomitant]

REACTIONS (3)
  - BACK PAIN [None]
  - DEEP VEIN THROMBOSIS [None]
  - PULMONARY EMBOLISM [None]
